FAERS Safety Report 17187366 (Version 1)
Quarter: 2019Q4

REPORT INFORMATION
  Report Type: Report from Study
  Country: US (occurrence: US)
  Receive Date: 20191220
  Receipt Date: 20191220
  Transmission Date: 20200122
  Serious: No
  Sender: FDA-Public Use
  Company Number: NVSC2019US025686

PATIENT
  Sex: Female

DRUGS (1)
  1. ENTRESTO [Suspect]
     Active Substance: SACUBITRIL\VALSARTAN
     Indication: PRODUCT USED FOR UNKNOWN INDICATION
     Dosage: 0.5 DF, (24MG SACUBITRIL, 26MG VALSARTAN ) BID
     Route: 048

REACTIONS (3)
  - Wrong technique in product usage process [Unknown]
  - Drug intolerance [Unknown]
  - Prescribed underdose [Unknown]
